FAERS Safety Report 21371817 (Version 1)
Quarter: 2022Q3

REPORT INFORMATION
  Report Type: Spontaneous
  Country: US (occurrence: None)
  Receive Date: 20220922
  Receipt Date: 20220922
  Transmission Date: 20221026
  Serious: Yes (Death)
  Sender: FDA-Public Use
  Company Number: None

PATIENT
  Age: 72 Year
  Sex: Male

DRUGS (1)
  1. PROMACTA [Suspect]
     Active Substance: ELTROMBOPAG OLAMINE
     Indication: Pancytopenia
     Dosage: FREQUENCY : DAILY;?
     Route: 048
     Dates: start: 20220520, end: 20220901

REACTIONS (14)
  - Facial paralysis [None]
  - Hemiparesis [None]
  - Lethargy [None]
  - Cerebral infarction [None]
  - Cerebral artery embolism [None]
  - Embolic stroke [None]
  - Metastases to central nervous system [None]
  - Pneumonia bacterial [None]
  - Pneumonia fungal [None]
  - Pulmonary alveolar haemorrhage [None]
  - Hypoxia [None]
  - General physical health deterioration [None]
  - Encephalopathy [None]
  - Malnutrition [None]

NARRATIVE: CASE EVENT DATE: 20220918
